FAERS Safety Report 8866033 (Version 1)
Quarter: 2012Q4

REPORT INFORMATION
  Report Type: Report from Study
  Country: US (occurrence: US)
  Receive Date: 20121025
  Receipt Date: 20121025
  Transmission Date: 20130627
  Serious: No
  Sender: FDA-Public Use
  Company Number: US-ABBOTT-11P-163-0877216-00

PATIENT
  Sex: Female
  Weight: 39.95 kg

DRUGS (3)
  1. LUPRON DEPOT 3.75 MG [Suspect]
     Indication: AMENORRHOEA
     Dates: start: 201106, end: 201110
  2. LUPRON DEPOT 3.75 MG [Suspect]
     Indication: PELVIC PAIN
  3. UNKNOWN MEDICATION [Concomitant]
     Indication: GLAUCOMA
     Route: 047

REACTIONS (5)
  - Adverse reaction [None]
  - Decreased appetite [None]
  - Weight decreased [None]
  - Fatigue [None]
  - Muscular weakness [None]
